FAERS Safety Report 22104617 (Version 1)
Quarter: 2023Q1

REPORT INFORMATION
  Report Type: Spontaneous
  Country: US (occurrence: US)
  Receive Date: 20230316
  Receipt Date: 20230316
  Transmission Date: 20230418
  Serious: Yes (Other)
  Sender: FDA-Public Use
  Company Number: US-TEVA-2023-US-2864841

PATIENT
  Age: 60 Year
  Sex: Female

DRUGS (2)
  1. HYDROCHLOROTHIAZIDE\TRIAMTERENE [Suspect]
     Active Substance: HYDROCHLOROTHIAZIDE\TRIAMTERENE
     Indication: Prehypertension
     Dosage: 37.5-25 MG-MG
     Route: 048
  2. HYDROCHLOROTHIAZIDE\TRIAMTERENE [Suspect]
     Active Substance: HYDROCHLOROTHIAZIDE\TRIAMTERENE
     Route: 065
     Dates: start: 20221219

REACTIONS (9)
  - Colitis ulcerative [Recovering/Resolving]
  - Ulcer haemorrhage [Recovered/Resolved]
  - Product use in unapproved indication [Unknown]
  - Product physical issue [Unknown]
  - Pain [Recovering/Resolving]
  - Inflammation [Unknown]
  - Diarrhoea [Unknown]
  - Illness [Recovering/Resolving]
  - Drug hypersensitivity [Unknown]

NARRATIVE: CASE EVENT DATE: 20221201
